FAERS Safety Report 25979520 (Version 2)
Quarter: 2025Q4

REPORT INFORMATION
  Report Type: Spontaneous
  Country: AU (occurrence: AU)
  Receive Date: 20251030
  Receipt Date: 20251223
  Transmission Date: 20260118
  Serious: Yes (Other)
  Sender: AMGEN
  Company Number: AU-AMGEN-AUSSP2025212741

PATIENT
  Age: 44 Year
  Sex: Female

DRUGS (8)
  1. BLINATUMOMAB [Suspect]
     Active Substance: BLINATUMOMAB
     Indication: Philadelphia chromosome positive
     Dosage: UNK, 4 CYCLES
     Route: 065
  2. BLINATUMOMAB [Suspect]
     Active Substance: BLINATUMOMAB
     Indication: B precursor type acute leukaemia
  3. BLINATUMOMAB [Suspect]
     Active Substance: BLINATUMOMAB
     Indication: Minimal residual disease
  4. PONATINIB [Concomitant]
     Active Substance: PONATINIB
     Indication: Philadelphia chromosome positive
     Dosage: 15 MILLIGRAM, QD
  5. PONATINIB [Concomitant]
     Active Substance: PONATINIB
     Indication: B precursor type acute leukaemia
     Dosage: 30 MILLIGRAM, QD, DOSE INCREASED
  6. PONATINIB [Concomitant]
     Active Substance: PONATINIB
     Indication: Minimal residual disease
  7. METHOTREXATE [Concomitant]
     Active Substance: METHOTREXATE
     Dosage: 13 IN TOTAL
     Route: 029
  8. CYTARABINE [Concomitant]
     Active Substance: CYTARABINE
     Dosage: 13 IN TOTAL
     Route: 029

REACTIONS (5)
  - Colitis [Unknown]
  - Arachnoiditis [Unknown]
  - Hypogammaglobulinaemia [Unknown]
  - Gastrooesophageal reflux disease [Unknown]
  - Folliculitis [Unknown]
